FAERS Safety Report 4282722-9 (Version None)
Quarter: 2004Q1

REPORT INFORMATION
  Report Type: 
  Country: None (occurrence: None)
  Receive Date: 20040130
  Receipt Date: 20030404
  Transmission Date: 20041129
  Serious: No
  Sender: FDA-Public Use
  Company Number: US-BRISTOL-MYERS SQUIBB COMPANY-12230553

PATIENT
  Age: 40 Year
  Sex: Male

DRUGS (6)
  1. SERZONE [Suspect]
     Indication: ATTENTION DEFICIT/HYPERACTIVITY DISORDER
     Route: 048
     Dates: start: 20010301, end: 20020722
  2. SERZONE [Suspect]
     Indication: ANXIETY
     Route: 048
     Dates: start: 20010301, end: 20020722
  3. WELLBUTRIN [Concomitant]
  4. PREVACID [Concomitant]
  5. TRICOSIL [Concomitant]
  6. VALTREX [Concomitant]

REACTIONS (1)
  - HEPATIC ENZYME INCREASED [None]
